FAERS Safety Report 4618585-9 (Version None)
Quarter: 2005Q1

REPORT INFORMATION
  Report Type: 
  Country: None (occurrence: None)
  Receive Date: 20050324
  Receipt Date: 20050316
  Transmission Date: 20050727
  Serious: Yes (Hospitalization)
  Sender: FDA-Public Use
  Company Number: 2005UW04231

PATIENT
  Age: 59 Year
  Sex: Male
  Weight: 80.2867 kg

DRUGS (13)
  1. IRESSA [Suspect]
     Indication: ADENOCARCINOMA
     Dosage: 250 MG DAILY PO
     Route: 048
     Dates: start: 20050208, end: 20050309
  2. IRESSA [Suspect]
     Indication: METASTATIC NEOPLASM
     Dosage: 250 MG DAILY PO
     Route: 048
     Dates: start: 20050208, end: 20050309
  3. TAXOL [Suspect]
     Indication: ADENOCARCINOMA
     Dosage: 301 MG IV
     Route: 042
     Dates: start: 20041001, end: 20050118
  4. TAXOL [Suspect]
     Indication: METASTATIC NEOPLASM
     Dosage: 301 MG IV
     Route: 042
     Dates: start: 20041001, end: 20050118
  5. CARBOPLATIN [Suspect]
     Indication: ADENOCARCINOMA
     Dosage: 503 MG IV
     Route: 042
     Dates: start: 20041001, end: 20050118
  6. CARBOPLATIN [Suspect]
     Indication: METASTATIC NEOPLASM
     Dosage: 503 MG IV
     Route: 042
     Dates: start: 20041001, end: 20050118
  7. ETOPOSIDE [Suspect]
     Indication: ADENOCARCINOMA
     Dosage: 50 MG/100MG
     Dates: start: 20041001, end: 20050122
  8. ETOPOSIDE [Suspect]
     Indication: METASTATIC NEOPLASM
     Dosage: 50 MG/100MG
     Dates: start: 20041001, end: 20050122
  9. OXYCONTIN [Concomitant]
  10. COUMADIN [Concomitant]
  11. LOVENOX [Concomitant]
  12. ALBUTEROL [Concomitant]
  13. MEGACE [Concomitant]

REACTIONS (15)
  - ADVERSE DRUG REACTION [None]
  - ALANINE AMINOTRANSFERASE INCREASED [None]
  - ALVEOLITIS ALLERGIC [None]
  - ASPARTATE AMINOTRANSFERASE INCREASED [None]
  - BLOOD ALKALINE PHOSPHATASE INCREASED [None]
  - COUGH [None]
  - DYSPNOEA [None]
  - INFECTION [None]
  - LUNG INFILTRATION [None]
  - NIGHT SWEATS [None]
  - OXYGEN SATURATION DECREASED [None]
  - PCO2 DECREASED [None]
  - PLEURITIC PAIN [None]
  - PYREXIA [None]
  - WHITE BLOOD CELL COUNT INCREASED [None]
